FAERS Safety Report 8807495 (Version 1)
Quarter: 2012Q4

REPORT INFORMATION
  Report Type: 
  Country: GB (occurrence: GB)
  Receive Date: 20120925
  Receipt Date: 20120925
  Transmission Date: 20130627
  Serious: Yes (Hospitalization)
  Sender: FDA-Public Use
  Company Number: GB-BAYER-2012-099069

PATIENT
  Age: 69 Year
  Sex: Male
  Weight: 77.5 kg

DRUGS (5)
  1. LEVITRA [Suspect]
     Indication: ERECTILE DYSFUNCTION
     Dosage: UNK UNK, PRN
     Dates: start: 200707
  2. LEVITRA 10 MG FILM-COATED TABLETS [Suspect]
     Indication: ERECTILE DYSFUNCTION
     Dosage: UNK UNK, PRN
     Dates: end: 20101123
  3. AMLODIPINE [Concomitant]
     Indication: HYPERTENSION
     Dosage: 5 mg, UNK
  4. LISINOPRIL [Concomitant]
     Indication: HYPERTENSION
     Dosage: 20 mg, UNK
  5. SIMVASTATIN [Concomitant]
     Dosage: 20 mg, UNK

REACTIONS (3)
  - Headache [Recovered/Resolved]
  - Retinal detachment [Recovered/Resolved]
  - Retinal tear [Recovered/Resolved]
